FAERS Safety Report 7511887-8 (Version None)
Quarter: 2011Q2

REPORT INFORMATION
  Report Type: 
  Country: None (occurrence: None)
  Receive Date: 20110531
  Receipt Date: 20110528
  Transmission Date: 20111010
  Serious: Yes (Other)
  Sender: FDA-Public Use
  Company Number: US-PFIZER INC-2011115605

PATIENT
  Sex: Female
  Weight: 86.168 kg

DRUGS (7)
  1. LISINOPRIL [Concomitant]
     Indication: HYPERTENSION
     Dosage: UNK
  2. LYRICA [Concomitant]
     Dosage: UNK
  3. CHANTIX [Suspect]
     Indication: SMOKING CESSATION THERAPY
     Dosage: 0.5 MG, 1X/DAY
     Route: 048
     Dates: start: 20110501, end: 20110501
  4. METFORMIN [Concomitant]
     Dosage: UNK
  5. HYDROXYZINE [Concomitant]
     Indication: ASTHMA
     Dosage: UNK
  6. CHANTIX [Suspect]
     Dosage: 1 MG, 2X/DAY
     Route: 048
     Dates: start: 20110501, end: 20110501
  7. TRAZODONE [Concomitant]
     Dosage: UNK

REACTIONS (2)
  - BLISTER [None]
  - SKIN LESION [None]
